FAERS Safety Report 11122837 (Version 1)
Quarter: 2015Q2

REPORT INFORMATION
  Report Type: Spontaneous
  Country: US (occurrence: US)
  Receive Date: 20150519
  Receipt Date: 20150519
  Transmission Date: 20150821
  Serious: No
  Sender: FDA-Public Use
  Company Number: US-PFIZER INC-2015168409

PATIENT
  Age: 51 Year
  Sex: Female
  Weight: 73 kg

DRUGS (2)
  1. PRISTIQ EXTENDED RELEASE [Suspect]
     Active Substance: DESVENLAFAXINE SUCCINATE
     Indication: DEPRESSION
     Dosage: 50 MG, 1X/DAY [IN MORNING]
  2. PRISTIQ EXTENDED RELEASE [Suspect]
     Active Substance: DESVENLAFAXINE SUCCINATE
     Indication: ANXIETY

REACTIONS (4)
  - Sedation [Unknown]
  - Condition aggravated [Unknown]
  - Emotional disorder [Unknown]
  - Fatigue [Unknown]
